FAERS Safety Report 17909806 (Version 1)
Quarter: 2020Q2

REPORT INFORMATION
  Report Type: Spontaneous
  Country: US (occurrence: US)
  Receive Date: 20200617
  Receipt Date: 20200617
  Transmission Date: 20200714
  Serious: Yes (Other)
  Sender: FDA-Public Use
  Company Number: US-PROCTER_AND_GAMBLE-GS20071100

PATIENT
  Sex: Female
  Weight: 44.9 kg

DRUGS (1)
  1. CREST GUM DETOXIFY [Suspect]
     Active Substance: STANNOUS FLUORIDE
     Dosage: 1 APPLIC, 1 ONLY
     Route: 002

REACTIONS (7)
  - Blindness [Not Recovered/Not Resolved]
  - Malnutrition [Unknown]
  - Oral candidiasis [Recovered/Resolved]
  - Inflammation [Unknown]
  - Visual impairment [Not Recovered/Not Resolved]
  - Weight decreased [Unknown]
  - Oral pain [Unknown]
